FAERS Safety Report 7657312-8 (Version None)
Quarter: 2011Q3

REPORT INFORMATION
  Report Type: 
  Country: None (occurrence: None)
  Receive Date: 20110804
  Receipt Date: 20110726
  Transmission Date: 20111222
  Serious: Yes (Other)
  Sender: FDA-Public Use
  Company Number: PHHY2011AU43658

PATIENT
  Sex: Female

DRUGS (6)
  1. CRESTOR [Concomitant]
     Dosage: 20 MG DAILY
     Route: 048
     Dates: start: 20110712
  2. LEVOTHYROXINE SODIUM [Concomitant]
     Indication: HYPOTHYROIDISM
     Dosage: 100 MG
     Route: 048
     Dates: start: 20030101
  3. ZOLEDRONOC ACID [Suspect]
     Indication: OSTEOPOROSIS
     Dosage: 5 MG
     Route: 042
     Dates: start: 20110517
  4. LERCANIDIPINE [Concomitant]
     Indication: HYPERTENSION
     Dosage: 10 MG
     Route: 048
     Dates: start: 20030101
  5. STEROIDS NOS [Concomitant]
     Dosage: UNK UKN, UNK
  6. IRBESARTAN + HYDROCHLOROTHIAZIDE [Concomitant]
     Indication: HYPERTENSION
     Dosage: 300/25 DAILY
     Route: 048
     Dates: start: 20030101

REACTIONS (3)
  - EYE PAIN [None]
  - RASH PRURITIC [None]
  - OCULAR HYPERAEMIA [None]
